FAERS Safety Report 20769587 (Version 2)
Quarter: 2022Q2

REPORT INFORMATION
  Report Type: Spontaneous
  Country: US (occurrence: US)
  Receive Date: 20220429
  Receipt Date: 20220622
  Transmission Date: 20220721
  Serious: Yes (Other)
  Sender: FDA-Public Use
  Company Number: US-BAYER-2022A062387

PATIENT
  Age: 7 Year
  Sex: Female

DRUGS (1)
  1. ASPIRIN [Suspect]
     Active Substance: ASPIRIN

REACTIONS (5)
  - Epistaxis [None]
  - Increased tendency to bruise [None]
  - Vaginal haemorrhage [None]
  - Haematochezia [None]
  - Off label use [None]
